FAERS Safety Report 8841753 (Version 1)
Quarter: 2012Q4

REPORT INFORMATION
  Report Type: 
  Country: US (occurrence: US)
  Receive Date: 20121016
  Receipt Date: 20121016
  Transmission Date: 20130627
  Serious: Yes (Hospitalization)
  Sender: FDA-Public Use
  Company Number: US-ELI_LILLY_AND_COMPANY-US201210003360

PATIENT
  Age: 77 Year
  Sex: Female

DRUGS (5)
  1. ALIMTA [Suspect]
     Indication: LUNG NEOPLASM MALIGNANT
     Dosage: UNK
     Dates: start: 20120925
  2. CARBOPLATIN [Concomitant]
     Indication: LUNG NEOPLASM MALIGNANT
  3. POTASSIUM [Concomitant]
  4. FOLIC ACID [Concomitant]
  5. VITAMIN B12 [Concomitant]

REACTIONS (5)
  - Rash pruritic [Not Recovered/Not Resolved]
  - Cardiac disorder [Unknown]
  - Agitation [Recovered/Resolved]
  - Nervous system disorder [Recovered/Resolved]
  - Blood count abnormal [Unknown]
